FAERS Safety Report 23150403 (Version 1)
Quarter: 2023Q4

REPORT INFORMATION
  Report Type: Spontaneous
  Country: US (occurrence: None)
  Receive Date: 20231105
  Receipt Date: 20231105
  Transmission Date: 20240109
  Serious: Yes (Disabling)
  Sender: FDA-Public Use
  Company Number: None

PATIENT
  Age: 80 Year
  Sex: Female
  Weight: 64.35 kg

DRUGS (16)
  1. OXYBUTYNIN [Suspect]
     Active Substance: OXYBUTYNIN
     Indication: Micturition urgency
     Dosage: OTHER QUANTITY : 1 TABLET(S);?FREQUENCY : DAILY;?
     Route: 048
     Dates: start: 20230710, end: 20231009
  2. VALSARTAN [Concomitant]
     Active Substance: VALSARTAN
  3. SPIRONOLACTONE [Concomitant]
     Active Substance: SPIRONOLACTONE
  4. PREMARIN VAGINAL [Concomitant]
     Active Substance: ESTROGENS, CONJUGATED
  5. NYSTATIN\TRIAMCINOLONE [Concomitant]
     Active Substance: NYSTATIN\TRIAMCINOLONE
  6. VITAMIN D2 [Concomitant]
     Active Substance: ERGOCALCIFEROL
  7. ROSUVASTATIN [Concomitant]
     Active Substance: ROSUVASTATIN
  8. GEMTESA [Concomitant]
     Active Substance: VIBEGRON
  9. FLUCONAZOLE [Concomitant]
     Active Substance: FLUCONAZOLE
  10. FLUTICASONE [Concomitant]
     Active Substance: FLUTICASONE
  11. Antihistamine eyedrops [Concomitant]
  12. D-Mannose Herbal Complex [Concomitant]
  13. Qunol Ultra Q10 [Concomitant]
  14. Cetrizine Hychloride [Concomitant]
  15. ACETAMINOPHEN [Concomitant]
     Active Substance: ACETAMINOPHEN
  16. VITAMIN C [Concomitant]
     Active Substance: ASCORBIC ACID

REACTIONS (5)
  - Confusional state [None]
  - Headache [None]
  - Abdominal discomfort [None]
  - Dyspepsia [None]
  - Eructation [None]

NARRATIVE: CASE EVENT DATE: 20230711
